FAERS Safety Report 10094331 (Version 1)
Quarter: 2014Q2

REPORT INFORMATION
  Report Type: Spontaneous
  Country: US (occurrence: US)
  Receive Date: 20140422
  Receipt Date: 20140422
  Transmission Date: 20141212
  Serious: No
  Sender: FDA-Public Use
  Company Number: US-BRISTOL-MYERS SQUIBB COMPANY-19398270

PATIENT
  Age: 54 Year
  Sex: Male
  Weight: 58.96 kg

DRUGS (4)
  1. DROXIA [Suspect]
     Indication: MYELODYSPLASTIC SYNDROME
     Dosage: 1DF = 500MG, 300MG,200MG
  2. DROXIA [Suspect]
     Indication: THROMBOCYTOSIS
     Dosage: 1DF = 500MG, 300MG,200MG
  3. HYDROXYUREA [Suspect]
     Indication: THROMBOCYTOSIS
  4. HYDROXYUREA [Suspect]
     Indication: MYELODYSPLASTIC SYNDROME

REACTIONS (4)
  - Arthropathy [Unknown]
  - Mass [Recovered/Resolved]
  - Fatigue [Unknown]
  - Off label use [Unknown]
